FAERS Safety Report 12953234 (Version 1)
Quarter: 2016Q4

REPORT INFORMATION
  Report Type: Spontaneous
  Country: US (occurrence: US)
  Receive Date: 20161117
  Receipt Date: 20161117
  Transmission Date: 20170207
  Serious: No
  Sender: FDA-Public Use
  Company Number: US-SHIRE-US201617394

PATIENT
  Age: 77 Year
  Sex: Male
  Weight: 63.49 kg

DRUGS (1)
  1. XIIDRA [Suspect]
     Active Substance: LIFITEGRAST
     Indication: DRY EYE
     Dosage: 1 GTT (LEFT EYE ONLY), 2X/DAY:BID
     Route: 047
     Dates: start: 201611

REACTIONS (3)
  - Wrong technique in product usage process [Recovered/Resolved]
  - Vision blurred [Recovered/Resolved]
  - Discomfort [Recovered/Resolved]

NARRATIVE: CASE EVENT DATE: 201611
